FAERS Safety Report 8760480 (Version 1)
Quarter: 2012Q4

REPORT INFORMATION
  Report Type: 
  Country: CN (occurrence: CN)
  Receive Date: 20120830
  Receipt Date: 20120830
  Transmission Date: 20130627
  Serious: Yes (Other)
  Sender: FDA-Public Use
  Company Number: CN-PFIZER INC-2012213409

PATIENT
  Sex: Female

DRUGS (1)
  1. CHAMPIX [Suspect]
     Indication: SMOKING CESSATION THERAPY
     Dosage: UNK
     Route: 048
     Dates: start: 20120828, end: 20120829

REACTIONS (6)
  - Hallucination [Recovered/Resolved]
  - Dizziness [Recovered/Resolved]
  - Sleep talking [Recovered/Resolved]
  - Hypoaesthesia oral [Recovered/Resolved]
  - Anger [Recovered/Resolved]
  - Headache [Recovered/Resolved]
